FAERS Safety Report 8685601 (Version 4)
Quarter: 2013Q4

REPORT INFORMATION
  Report Type: Spontaneous
  Country: BR (occurrence: BR)
  Receive Date: 20120726
  Receipt Date: 20131106
  Transmission Date: 20140711
  Serious: Yes (Hospitalization, Other)
  Sender: FDA-Public Use
  Company Number: BR-MSD-1207BRA007428

PATIENT
  Age: 40 Year
  Sex: Male
  Weight: 61.4 kg

DRUGS (9)
  1. VICTRELIS [Suspect]
     Indication: HEPATITIS C
     Dosage: UNK UNK, UNKNOWN
     Route: 048
     Dates: start: 20120616, end: 20120916
  2. PEG-INTRON [Suspect]
     Indication: HEPATITIS C
     Dosage: 120 MICROGRAM, UNKNOWN
     Route: 058
     Dates: start: 20120526, end: 20120615
  3. PEG-INTRON [Suspect]
     Dosage: 80 MICROGRAM, UNKNOWN
     Route: 058
     Dates: start: 20120616, end: 20120916
  4. RIBAVIRIN [Concomitant]
     Indication: HEPATITIS C
     Dosage: UNK, UNKNOWN
     Route: 048
     Dates: start: 20120526
  5. RIBAVIRIN [Concomitant]
     Dosage: 500 MG, QAM
     Route: 048
     Dates: start: 20120616
  6. RIBAVIRIN [Concomitant]
     Dosage: 250 MG, QPM
     Route: 048
     Dates: start: 20120616, end: 20120915
  7. RIBAVIRIN [Concomitant]
     Dosage: 500 MG, QPM
     Route: 048
     Dates: start: 20120916
  8. SUCRAFILM [Concomitant]
     Dosage: UNK, TID
     Route: 048
  9. VITERGAN MASTER [Concomitant]
     Indication: VITAMIN SUPPLEMENTATION
     Dosage: UNK, QD
     Route: 048

REACTIONS (21)
  - Meningitis [Unknown]
  - Colitis [Unknown]
  - Colitis [Not Recovered/Not Resolved]
  - Diarrhoea [Not Recovered/Not Resolved]
  - Dysentery [Recovered/Resolved]
  - Oedema peripheral [Not Recovered/Not Resolved]
  - Abdominal distension [Not Recovered/Not Resolved]
  - Weight fluctuation [Not Recovered/Not Resolved]
  - White blood cell count decreased [Recovering/Resolving]
  - Swelling face [Not Recovered/Not Resolved]
  - Red blood cell count decreased [Recovered/Resolved]
  - Alopecia [Not Recovered/Not Resolved]
  - Weight decreased [Not Recovered/Not Resolved]
  - Neutrophil count decreased [Not Recovered/Not Resolved]
  - Platelet count decreased [Not Recovered/Not Resolved]
  - Pyrexia [Not Recovered/Not Resolved]
  - Chills [Not Recovered/Not Resolved]
  - Haemoglobin decreased [Recovered/Resolved]
  - Drug ineffective [Unknown]
  - Asthenia [Recovered/Resolved]
  - Decreased immune responsiveness [Not Recovered/Not Resolved]
